FAERS Safety Report 10723437 (Version 2)
Quarter: 2015Q1

REPORT INFORMATION
  Report Type: Spontaneous
  Country: JP (occurrence: JP)
  Receive Date: 20150120
  Receipt Date: 20150317
  Transmission Date: 20150721
  Serious: Yes (Hospitalization, Other)
  Sender: FDA-Public Use
  Company Number: JP-PFIZER INC-2015017990

PATIENT
  Age: 7 Decade
  Sex: Male

DRUGS (5)
  1. ERBITUX [Suspect]
     Active Substance: CETUXIMAB
     Indication: COLON CANCER
     Dosage: UNK UNK, CYCLIC
     Dates: start: 201312, end: 2014
  2. CAMPTO [Suspect]
     Active Substance: IRINOTECAN
     Indication: COLON CANCER
     Dosage: UNK, ONCE A DAY
     Route: 041
     Dates: start: 201312, end: 2014
  3. 5-FU [Suspect]
     Active Substance: FLUOROURACIL
     Indication: COLON CANCER
     Dosage: UNK UNK, CYCLIC
     Route: 040
     Dates: start: 201312, end: 2014
  4. 5-FU [Suspect]
     Active Substance: FLUOROURACIL
     Dosage: UNK UNK, CYCLIC
     Route: 042
     Dates: start: 201312, end: 2014
  5. LEVOLEUCOVORIN CALCIUM [Suspect]
     Active Substance: LEVOLEUCOVORIN CALCIUM
     Indication: COLON CANCER
     Dosage: UNK, ONCE A DAY
     Route: 041
     Dates: start: 201312, end: 2014

REACTIONS (1)
  - Gastrointestinal necrosis [Recovering/Resolving]

NARRATIVE: CASE EVENT DATE: 201405
